FAERS Safety Report 18186698 (Version 5)
Quarter: 2021Q3

REPORT INFORMATION
  Report Type: Spontaneous
  Country: US (occurrence: US)
  Receive Date: 20200824
  Receipt Date: 20210721
  Transmission Date: 20211014
  Serious: Yes (Other)
  Sender: FDA-Public Use
  Company Number: US-PFIZER INC-2020323249

PATIENT
  Age: 58 Year
  Sex: Female

DRUGS (1)
  1. XELJANZ XR [Suspect]
     Active Substance: TOFACITINIB CITRATE
     Indication: RHEUMATOID ARTHRITIS
     Dosage: 11 MG, 1X/DAY
     Route: 048
     Dates: start: 202002

REACTIONS (9)
  - Blood cholesterol increased [Unknown]
  - Abdominal pain [Recovering/Resolving]
  - Sensitivity to weather change [Unknown]
  - Oesophagitis bacterial [Unknown]
  - Product dose omission in error [Unknown]
  - Gastritis bacterial [Unknown]
  - Therapeutic product effect incomplete [Recovered/Resolved]
  - Hypoaesthesia [Unknown]
  - Polyp [Recovered/Resolved]

NARRATIVE: CASE EVENT DATE: 2021
